FAERS Safety Report 9155909 (Version 3)
Quarter: 2013Q3

REPORT INFORMATION
  Report Type: Spontaneous
  Country: JP (occurrence: JP)
  Receive Date: 20130311
  Receipt Date: 20130807
  Transmission Date: 20140515
  Serious: Yes (Death)
  Sender: FDA-Public Use
  Company Number: JP-UCBSA-080214

PATIENT
  Age: 31 Year
  Sex: Male

DRUGS (13)
  1. E KEPPRA [Suspect]
     Indication: EPILEPSY
     Route: 048
     Dates: start: 20121102, end: 20121106
  2. E KEPPRA [Suspect]
     Indication: EPILEPSY
     Dosage: DAILY DOSE: 2000 MG
     Route: 048
     Dates: start: 20121107, end: 20121217
  3. E KEPPRA [Suspect]
     Indication: EPILEPSY
     Dosage: DAILY ODSE: 2250 MG
     Route: 048
     Dates: start: 20121218, end: 20130213
  4. E KEPPRA [Suspect]
     Indication: EPILEPSY
     Dosage: DAILY DOSE: 2500 MG
     Route: 048
     Dates: start: 20130214, end: 2013
  5. TOPINA [Concomitant]
     Dosage: DAILY DOSE: 50 MG
     Route: 048
     Dates: start: 20121102, end: 20121203
  6. TOPINA [Concomitant]
     Dosage: DAILY DOSE: 100 MG
     Route: 048
     Dates: start: 20121204
  7. ALEVIATIN [Concomitant]
     Dosage: DAILY DOSE: 115 MG
     Route: 048
     Dates: start: 20121102, end: 20130115
  8. ALEVIATIN [Concomitant]
     Dosage: DAILY DOSE: 100 MG
     Route: 048
     Dates: start: 20130116, end: 2013
  9. MYSTAN [Concomitant]
     Dosage: DAILY DOSE: 25 MG
     Route: 048
     Dates: start: 20121102
  10. CERCINE [Concomitant]
     Dosage: DAILY DOSE: 10 ML
     Route: 048
     Dates: start: 20121102
  11. NELBON [Concomitant]
     Dosage: DAILY DOSE: 10 MG
     Route: 048
     Dates: start: 20121120
  12. MAGLAX [Concomitant]
     Route: 048
     Dates: start: 20121102, end: 20121218
  13. PURSENNID [Concomitant]
     Route: 048
     Dates: start: 20121102, end: 20121218

REACTIONS (1)
  - Completed suicide [Fatal]
